FAERS Safety Report 20752065 (Version 1)
Quarter: 2022Q2

REPORT INFORMATION
  Report Type: Spontaneous
  Country: US (occurrence: US)
  Receive Date: 20220426
  Receipt Date: 20220426
  Transmission Date: 20220721
  Serious: Yes (Other)
  Sender: FDA-Public Use
  Company Number: US-ALLERGAN-2213406US

PATIENT
  Sex: Female

DRUGS (2)
  1. TAZAROTENE [Suspect]
     Active Substance: TAZAROTENE
     Indication: Acne
     Dosage: EVERY NIGHT OR TWICE DAILY
     Route: 061
  2. UNSPECIFIED INGREDIENT [Concomitant]
     Active Substance: UNSPECIFIED INGREDIENT
     Indication: Acne

REACTIONS (5)
  - Choroid melanoma [Unknown]
  - Skin atrophy [Unknown]
  - Hyperaesthesia [Unknown]
  - Skin reaction [Unknown]
  - Eye paraesthesia [Unknown]
